FAERS Safety Report 10889750 (Version 1)
Quarter: 2015Q1

REPORT INFORMATION
  Report Type: Spontaneous
  Country: CA (occurrence: CA)
  Receive Date: 20150306
  Receipt Date: 20150306
  Transmission Date: 20150721
  Serious: Yes (Other)
  Sender: FDA-Public Use
  Company Number: CA-AMGEN-CANSP2014008423

PATIENT
  Age: 29 Year
  Sex: Male

DRUGS (3)
  1. HUMIRA [Suspect]
     Active Substance: ADALIMUMAB
     Indication: PRODUCT USED FOR UNKNOWN INDICATION
     Dosage: UNK
     Route: 058
  2. ENBREL [Suspect]
     Active Substance: ETANERCEPT
     Indication: PSORIATIC ARTHROPATHY
     Dosage: 50 MG, UNK
     Route: 058
     Dates: start: 20130307
  3. METHOTREXATE [Suspect]
     Active Substance: METHOTREXATE
     Indication: PRODUCT USED FOR UNKNOWN INDICATION
     Dosage: UNK
     Route: 065

REACTIONS (16)
  - Mood swings [Unknown]
  - Skin ulcer [Unknown]
  - Tinea pedis [Unknown]
  - Drug hypersensitivity [Unknown]
  - Nervous system disorder [Unknown]
  - Hypoaesthesia [Unknown]
  - Pruritus [Unknown]
  - Arthritis [Unknown]
  - Nail disorder [Unknown]
  - Pain in extremity [Unknown]
  - Abdominal distension [Unknown]
  - Insomnia [Unknown]
  - Aphonia [Unknown]
  - Psoriatic arthropathy [Unknown]
  - Eye pruritus [Unknown]
  - Dysphonia [Unknown]

NARRATIVE: CASE EVENT DATE: 20140505
